FAERS Safety Report 5581588-4 (Version None)
Quarter: 2008Q1

REPORT INFORMATION
  Report Type: 
  Country: None (occurrence: None)
  Receive Date: 20080104
  Receipt Date: 20071221
  Transmission Date: 20080703
  Serious: Yes (Life-Threatening, Hospitalization)
  Sender: FDA-Public Use
  Company Number: CA-BRACCO-BDI-010466

PATIENT
  Sex: Female
  Weight: 68 kg

DRUGS (3)
  1. MULTIHANCE [Suspect]
     Indication: ANGIOGRAM PERIPHERAL
     Dosage: 0.8 MILLILITER/SECOND
     Route: 042
     Dates: start: 20071029, end: 20071029
  2. MULTIHANCE [Suspect]
     Indication: INTERMITTENT CLAUDICATION
     Dosage: 0.8 MILLILITER/SECOND
     Route: 042
     Dates: start: 20071029, end: 20071029
  3. MULTIHANCE [Suspect]
     Indication: PERIPHERAL ARTERIAL OCCLUSIVE DISEASE
     Dosage: 0.8 MILLILITER/SECOND
     Route: 042
     Dates: start: 20071029, end: 20071029

REACTIONS (6)
  - ANAPHYLACTOID REACTION [None]
  - ANOXIC ENCEPHALOPATHY [None]
  - INTESTINAL ISCHAEMIA [None]
  - LACTIC ACIDOSIS [None]
  - MYOPATHY [None]
  - RENAL FAILURE [None]
